FAERS Safety Report 5480046-5 (Version None)
Quarter: 2007Q4

REPORT INFORMATION
  Report Type: 
  Country: None (occurrence: None)
  Receive Date: 20071008
  Receipt Date: 20070926
  Transmission Date: 20080405
  Serious: Yes (Hospitalization)
  Sender: FDA-Public Use
  Company Number: US-PFIZER INC-2007079984

PATIENT
  Sex: Male
  Weight: 113.63 kg

DRUGS (5)
  1. FLAGYL I.V. [Suspect]
     Indication: BRAIN ABSCESS
     Route: 042
  2. DILANTIN [Concomitant]
  3. RIFAPENTINE [Concomitant]
  4. ZOLPIDEM TARTRATE [Concomitant]
  5. ROCEPHIN [Concomitant]

REACTIONS (12)
  - ALANINE AMINOTRANSFERASE INCREASED [None]
  - ALTERED STATE OF CONSCIOUSNESS [None]
  - ASPARTATE AMINOTRANSFERASE INCREASED [None]
  - BLOOD CHLORIDE DECREASED [None]
  - CARBON DIOXIDE DECREASED [None]
  - DIARRHOEA [None]
  - DISBACTERIOSIS [None]
  - DRUG ADMINISTRATION ERROR [None]
  - MONOCYTE COUNT INCREASED [None]
  - OVERDOSE [None]
  - PARAESTHESIA [None]
  - WHITE BLOOD CELL COUNT DECREASED [None]
